FAERS Safety Report 4428414-4 (Version None)
Quarter: 2004Q3

REPORT INFORMATION
  Report Type: 
  Country: None (occurrence: None)
  Receive Date: 20040818
  Receipt Date: 20040618
  Transmission Date: 20050211
  Serious: Yes (Life-Threatening, Hospitalization, Disabling)
  Sender: FDA-Public Use
  Company Number: 200416180GDDC

PATIENT
  Age: 11 Year
  Sex: Male

DRUGS (1)
  1. MINIRIN [Suspect]
     Indication: DIABETES INSIPIDUS
     Route: 045
     Dates: start: 20010801

REACTIONS (8)
  - ACUTE RESPIRATORY DISTRESS SYNDROME [None]
  - ATAXIA [None]
  - BRONCHIAL INFECTION [None]
  - BRONCHIAL OBSTRUCTION [None]
  - HYDROCEPHALUS [None]
  - INTRACRANIAL PRESSURE INCREASED [None]
  - OEDEMA PERIPHERAL [None]
  - OVERDOSE [None]
